FAERS Safety Report 5199163-2 (Version None)
Quarter: 2007Q1

REPORT INFORMATION
  Report Type: 
  Country: None (occurrence: None)
  Receive Date: 20070104
  Receipt Date: 20061227
  Transmission Date: 20070707
  Serious: Yes (Other)
  Sender: FDA-Public Use
  Company Number: US-PFIZER INC-2006111544

PATIENT
  Sex: Female

DRUGS (2)
  1. CELEBREX [Suspect]
     Indication: PROPHYLAXIS
  2. LAMISIL [Suspect]
     Indication: ONYCHOMYCOSIS
     Dates: start: 20060807, end: 20060801

REACTIONS (11)
  - BALANCE DISORDER [None]
  - DIZZINESS [None]
  - DYSGRAPHIA [None]
  - GAIT DISTURBANCE [None]
  - HALLUCINATION [None]
  - NEUROPATHY PERIPHERAL [None]
  - ONYCHOMYCOSIS [None]
  - PAIN [None]
  - PARAESTHESIA [None]
  - SPEECH DISORDER [None]
  - SURGERY [None]
